FAERS Safety Report 6670905-X (Version None)
Quarter: 2010Q2

REPORT INFORMATION
  Report Type: 
  Country: None (occurrence: None)
  Receive Date: 20100407
  Receipt Date: 20100323
  Transmission Date: 20101027
  Serious: No
  Sender: FDA-Public Use
  Company Number: US-B.I. PHARMACEUTICALS,INC./RIDGEFIELD-2010-BP-03389BP

PATIENT
  Age: 60 Year
  Sex: Male

DRUGS (7)
  1. CLONIDINE HCL [Suspect]
     Indication: HYPERTENSION
     Dosage: 0.4 MG
     Route: 048
     Dates: start: 20100217, end: 20100218
  2. COZAAR [Concomitant]
     Dosage: 100 MG
  3. HYDROCHLOROTHIAZIDE [Concomitant]
     Dosage: 25 MG
  4. METFORMIN [Concomitant]
     Dosage: 2475 MG
  5. GLYBURIDE [Concomitant]
     Dosage: 10 MG
  6. SIMVASTATIN [Concomitant]
     Dosage: 20 MG
  7. LEVEMIR [Concomitant]
     Dosage: 72 U
     Route: 058

REACTIONS (5)
  - BLOOD PRESSURE DECREASED [None]
  - DIZZINESS [None]
  - LETHARGY [None]
  - MUSCULAR WEAKNESS [None]
  - SOMNOLENCE [None]
